FAERS Safety Report 9428910 (Version 1)
Quarter: 2013Q3

REPORT INFORMATION
  Report Type: Spontaneous
  Country: US (occurrence: US)
  Receive Date: 20130730
  Receipt Date: 20130730
  Transmission Date: 20140515
  Serious: No
  Sender: FDA-Public Use
  Company Number: US-ABBOTT-13P-163-1041786-00

PATIENT
  Age: 62 Year
  Sex: Female
  Weight: 77.18 kg

DRUGS (5)
  1. NIASPAN (COATED) [Suspect]
     Indication: BLOOD CHOLESTEROL INCREASED
     Dates: start: 20121210, end: 20130109
  2. NIASPAN (COATED) [Suspect]
     Indication: BLOOD TRIGLYCERIDES INCREASED
     Dates: start: 20130110, end: 20130117
  3. SYNTHROID [Concomitant]
     Indication: BASEDOW^S DISEASE
  4. HYDROCHOROTHIAZIDE [Concomitant]
     Indication: BLOOD PRESSURE
  5. HYDROCHOROTHIAZIDE [Concomitant]
     Indication: FLUID RETENTION

REACTIONS (2)
  - Arthralgia [Recovering/Resolving]
  - Oedema peripheral [Recovering/Resolving]
